FAERS Safety Report 11986827 (Version 2)
Quarter: 2016Q1

REPORT INFORMATION
  Report Type: Spontaneous
  Country: US (occurrence: US)
  Receive Date: 20160202
  Receipt Date: 20160203
  Transmission Date: 20160526
  Serious: No
  Sender: FDA-Public Use
  Company Number: US-UCBSA-2015004555

PATIENT
  Sex: Male

DRUGS (2)
  1. KEPPRA XR [Suspect]
     Active Substance: LEVETIRACETAM
     Indication: SEIZURE
     Dosage: UNKNOWN DOSE AND FREQUENCY
  2. KEPPRA [Suspect]
     Active Substance: LEVETIRACETAM
     Indication: SEIZURE
     Dosage: UNKNOWN DOSE AND FREQUENCY

REACTIONS (7)
  - Skin burning sensation [Unknown]
  - Pulse abnormal [Unknown]
  - Feeling cold [Unknown]
  - Paraesthesia [Unknown]
  - Muscle spasms [Unknown]
  - Fatigue [Unknown]
  - Seizure [Unknown]
